FAERS Safety Report 9928635 (Version 1)
Quarter: 2014Q1

REPORT INFORMATION
  Report Type: Spontaneous
  Country: AR (occurrence: AR)
  Receive Date: 20140227
  Receipt Date: 20140227
  Transmission Date: 20141002
  Serious: Yes (Other)
  Sender: FDA-Public Use
  Company Number: AR-PFIZER INC-2014053681

PATIENT
  Sex: Female

DRUGS (1)
  1. SOMAVERT [Suspect]
     Indication: ACROMEGALY
     Dosage: 15 MG, 7X/WEEK
     Dates: start: 20121029

REACTIONS (1)
  - Pituitary tumour recurrent [Not Recovered/Not Resolved]
